FAERS Safety Report 17892037 (Version 2)
Quarter: 2020Q3

REPORT INFORMATION
  Report Type: Spontaneous
  Country: DE (occurrence: DE)
  Receive Date: 20200612
  Receipt Date: 20200716
  Transmission Date: 20201103
  Serious: Yes (Congenital Anomaly)
  Sender: FDA-Public Use
  Company Number: DE-ASCEND THERAPEUTICS US, LLC-2085733

PATIENT
  Age: 2 Month
  Sex: Male
  Weight: 3.62 kg

DRUGS (12)
  1. PROLUTEX (PROGESTERONE), UNKNOWN?INDICATION FOR USE: FEMALE INFERTILIT [Suspect]
     Active Substance: PROGESTERONE
     Route: 064
  2. GYNOKADIN (ESTRADIOL HEMIHYDRATE) [Suspect]
     Active Substance: ESTRADIOL
  3. ADVANTAN (METHYLPREDNISOLONE ACEPONATE) [Concomitant]
     Active Substance: METHYLPREDNISOLONE ACEPONATE
     Route: 064
  4. UTROGEST (UTROGEST) (PROGESTERONE), UNKNOWN?INDICATION FOR USE: FEMALE [Suspect]
     Active Substance: PROGESTERONE
     Route: 064
  5. PROGYNOVA [ESTRADIOL VALERATE] [Suspect]
     Active Substance: ESTRADIOL VALERATE
     Route: 064
  6. LEVOTHYROXINE SODIUM. [Concomitant]
     Active Substance: LEVOTHYROXINE SODIUM
     Route: 064
     Dates: start: 20181221, end: 20191002
  7. NYSTALOCAL (DEXAMETHASONE, NYSTATIN, CHLORHEXIDINE HYDROCHLORIDE), UNK [Concomitant]
     Route: 064
     Dates: start: 20190315, end: 20190420
  8. METFORMIN [Suspect]
     Active Substance: METFORMIN HYDROCHLORIDE
     Route: 064
     Dates: start: 20181221, end: 20191002
  9. ESTROGEL [Suspect]
     Active Substance: ESTRADIOL
     Indication: INFERTILITY FEMALE
     Route: 064
  10. ESTROGEL [Suspect]
     Active Substance: ESTRADIOL
  11. CYTOTEC [Concomitant]
     Active Substance: MISOPROSTOL
     Route: 064
  12. ASS 100 (ACETYLSALICYCLIC), UNKNOWN?INDICATION FOR USE: PROPHYLACTIC [Concomitant]
     Active Substance: ASPIRIN
     Route: 064

REACTIONS (3)
  - Congenital coronary artery malformation [Unknown]
  - Atrial septal defect [Unknown]
  - Foetal exposure during pregnancy [None]
